FAERS Safety Report 5204335-4 (Version None)
Quarter: 2007Q1

REPORT INFORMATION
  Report Type: 
  Country: None (occurrence: None)
  Receive Date: 20070110
  Receipt Date: 20060217
  Transmission Date: 20070707
  Serious: Yes (Hospitalization)
  Sender: FDA-Public Use
  Company Number: US-BRISTOL-MYERS SQUIBB COMPANY-13289459

PATIENT
  Age: 12 Year
  Sex: Female

DRUGS (1)
  1. ABILIFY [Suspect]
     Route: 048

REACTIONS (2)
  - BODY TEMPERATURE INCREASED [None]
  - HEADACHE [None]
